FAERS Safety Report 12905995 (Version 1)
Quarter: 2016Q4

REPORT INFORMATION
  Report Type: Spontaneous
  Country: RU (occurrence: RU)
  Receive Date: 20161103
  Receipt Date: 20161103
  Transmission Date: 20170207
  Serious: Yes (Other)
  Sender: FDA-Public Use
  Company Number: RU-ALEMBIC PHARMACUETICALS LIMITED-2016SCAL000877

PATIENT

DRUGS (3)
  1. LEFLUNOMIDE. [Suspect]
     Active Substance: LEFLUNOMIDE
     Indication: RHEUMATOID ARTHRITIS
     Dosage: UNK
  2. TOFACITINIB [Suspect]
     Active Substance: TOFACITINIB
     Indication: RHEUMATOID ARTHRITIS
     Dosage: 5 MG, BID PER OS
  3. TOFACITINIB [Suspect]
     Active Substance: TOFACITINIB
     Dosage: 10 MG, BID, DOSE ESCALATION

REACTIONS (14)
  - Herpes simplex [Unknown]
  - Bronchitis [Unknown]
  - Nasopharyngitis [Unknown]
  - Cystitis [Unknown]
  - Headache [Unknown]
  - Drug ineffective [Unknown]
  - Haemorrhoids [Unknown]
  - Latent tuberculosis [Unknown]
  - Nausea [Unknown]
  - Dermatitis allergic [Unknown]
  - Erysipelas [Unknown]
  - Rash [Unknown]
  - Liver function test increased [Unknown]
  - Herpes zoster [Unknown]
